FAERS Safety Report 5627271-8 (Version None)
Quarter: 2008Q1

REPORT INFORMATION
  Report Type: 
  Country: None (occurrence: None)
  Receive Date: 20080215
  Receipt Date: 20080204
  Transmission Date: 20080703
  Serious: Yes (Other)
  Sender: FDA-Public Use
  Company Number: AU-BAYER-200812512GPV

PATIENT
  Age: 55 Year
  Sex: Female

DRUGS (3)
  1. ANGELIQ [Suspect]
     Indication: HORMONE REPLACEMENT THERAPY
     Route: 048
  2. AROPAX/PAROXETINE [Concomitant]
     Indication: ANXIETY
     Route: 048
  3. ATACAND [Concomitant]
     Indication: HYPERTENSION
     Route: 048

REACTIONS (3)
  - BLINDNESS [None]
  - MIGRAINE [None]
  - TUNNEL VISION [None]
